FAERS Safety Report 4749271-2 (Version None)
Quarter: 2005Q3

REPORT INFORMATION
  Report Type: 
  Country: None (occurrence: None)
  Receive Date: 20050812
  Receipt Date: 20050504
  Transmission Date: 20060218
  Serious: Yes (Other)
  Sender: FDA-Public Use
  Company Number: 404092

PATIENT
  Age: 49 Year
  Sex: Female
  Weight: 153.3 kg

DRUGS (3)
  1. PEGASYS [Suspect]
     Indication: HEPATITIS C
     Dosage: 1 PER WEEK SUBCUTANEOUS
     Route: 058
     Dates: start: 20041118, end: 20050428
  2. COPEGUS [Suspect]
     Indication: HEPATITIS C
     Dosage: ORAL
     Route: 048
     Dates: start: 20041118, end: 20050428
  3. ANTIDEPRESSANT NOS [Concomitant]

REACTIONS (4)
  - ARTHRALGIA [None]
  - FEELING OF DESPAIR [None]
  - SELF-INJURIOUS IDEATION [None]
  - TEARFULNESS [None]
